FAERS Safety Report 17756688 (Version 1)
Quarter: 2020Q2

REPORT INFORMATION
  Report Type: Spontaneous
  Country: US (occurrence: US)
  Receive Date: 20200507
  Receipt Date: 20200507
  Transmission Date: 20200714
  Serious: Yes (Death, Hospitalization)
  Sender: FDA-Public Use
  Company Number: US-MYLANLABS-2020M1046267

PATIENT
  Age: 56 Year
  Sex: Male

DRUGS (3)
  1. ACICLOVIR [Suspect]
     Active Substance: ACYCLOVIR
     Indication: HERPES SIMPLEX
     Dosage: 10 MILLIGRAM/KILOGRAM, Q8H
     Route: 042
  2. DEXAMETHASONE. [Suspect]
     Active Substance: DEXAMETHASONE
     Dosage: 10 MILLIGRAM10 MG EVERY 12HR, INITIATED ON HOSPITAL DAY 3
     Route: 065
  3. DEXAMETHASONE. [Suspect]
     Active Substance: DEXAMETHASONE
     Indication: GLIOMA
     Dosage: IN DIVIDED DOSES FOR 2 WEEKS; STARTED 6 WEEKS PRIOR TO ADMISSION, 24 MILLIGRAM, QD
     Route: 065

REACTIONS (8)
  - Herpes simplex [Fatal]
  - Multiple organ dysfunction syndrome [Fatal]
  - Acute kidney injury [Not Recovered/Not Resolved]
  - Coagulopathy [Not Recovered/Not Resolved]
  - Drug ineffective [Unknown]
  - Adrenal cortex necrosis [Not Recovered/Not Resolved]
  - Hepatitis fulminant [Fatal]
  - Encephalopathy [Not Recovered/Not Resolved]
